FAERS Safety Report 10913552 (Version 1)
Quarter: 2015Q1

REPORT INFORMATION
  Report Type: Spontaneous
  Country: FI (occurrence: FI)
  Receive Date: 20150313
  Receipt Date: 20150313
  Transmission Date: 20150721
  Serious: Yes (Disabling)
  Sender: FDA-Public Use
  Company Number: FI-BAYER-2015-034575

PATIENT
  Age: 35 Year
  Sex: Female

DRUGS (7)
  1. PREDNISOLON [Concomitant]
     Active Substance: PREDNISOLONE
     Indication: COLITIS ULCERATIVE
     Dosage: DAILY DOSE 40 MG
     Route: 042
     Dates: start: 20150211
  2. CLEXANE [Concomitant]
     Active Substance: ENOXAPARIN SODIUM
     Indication: ANTICOAGULANT THERAPY
     Dosage: 40 MG ONCE A DAILY
     Dates: start: 20150211, end: 20150222
  3. SOMAC [Concomitant]
     Active Substance: PANTOPRAZOLE SODIUM
     Indication: GASTRIC DISORDER
     Dosage: DAILY DOSE 40 MG
     Dates: start: 20150211
  4. ASACOL [Concomitant]
     Active Substance: MESALAMINE
     Dosage: DAILY DOSE 2400 MG
  5. FLAGYL [Concomitant]
     Active Substance: METRONIDAZOLE\METRONIDAZOLE HYDROCHLORIDE
     Indication: BACTERIAL INFECTION
     Dosage: DAILY DOSE 1200 MG
     Route: 058
     Dates: start: 20150211, end: 20150213
  6. CIPROXIN [Suspect]
     Active Substance: CIPROFLOXACIN
     Indication: BACTERIAL INFECTION
     Dosage: DAILY DOSE 1000 MG
     Route: 048
     Dates: start: 20150211, end: 20150213
  7. SOLU-MEDROL [Concomitant]
     Active Substance: METHYLPREDNISOLONE SODIUM SUCCINATE
     Dosage: 40 MG + 20 MG
     Route: 042

REACTIONS (11)
  - Panic attack [None]
  - Burning sensation [None]
  - Arthralgia [None]
  - Dyspnoea [None]
  - Gastrointestinal pain [None]
  - Paraesthesia [None]
  - Hallucination [None]
  - Heart rate increased [None]
  - Hypotonia [Not Recovered/Not Resolved]
  - Somnolence [None]
  - Intestinal haemorrhage [None]

NARRATIVE: CASE EVENT DATE: 20150213
